FAERS Safety Report 11102344 (Version 1)
Quarter: 2015Q2

REPORT INFORMATION
  Report Type: Spontaneous
  Country: US (occurrence: None)
  Receive Date: 20150508
  Receipt Date: 20150508
  Transmission Date: 20150821
  Serious: No
  Sender: FDA-Public Use
  Company Number: None

PATIENT
  Age: 88 Year
  Sex: Female
  Weight: 70.31 kg

DRUGS (1)
  1. METRONIDAZOLE. [Suspect]
     Active Substance: METRONIDAZOLE
     Indication: ENDOSCOPY
     Dosage: ONLY TOOK 1/2 250 MG, ONCE DAY
     Dates: start: 20150406, end: 20150408

REACTIONS (10)
  - Neck pain [None]
  - Vomiting [None]
  - Urticaria [None]
  - Ear pain [None]
  - Cough [None]
  - Oropharyngeal pain [None]
  - Gastric pH decreased [None]
  - Gingival bleeding [None]
  - Product physical consistency issue [None]
  - Rash macular [None]

NARRATIVE: CASE EVENT DATE: 20150406
